FAERS Safety Report 22665780 (Version 3)
Quarter: 2023Q4

REPORT INFORMATION
  Report Type: Report from Study
  Country: JP (occurrence: JP)
  Receive Date: 20230703
  Receipt Date: 20231128
  Transmission Date: 20240109
  Serious: Yes (Death, Hospitalization)
  Sender: FDA-Public Use
  Company Number: JP-Merck Healthcare KGaA-9239058

PATIENT
  Age: 76 Year
  Sex: Male
  Weight: 55 kg

DRUGS (6)
  1. BAVENCIO [Suspect]
     Active Substance: AVELUMAB
     Indication: Transitional cell carcinoma
     Route: 041
     Dates: start: 20210511, end: 20210511
  2. BAVENCIO [Suspect]
     Active Substance: AVELUMAB
     Route: 041
     Dates: start: 20210525, end: 20210525
  3. ACETAMINOPHEN [Concomitant]
     Active Substance: ACETAMINOPHEN
     Indication: Transitional cell carcinoma
     Route: 041
     Dates: start: 20210511, end: 20210511
  4. ACETAMINOPHEN [Concomitant]
     Active Substance: ACETAMINOPHEN
     Route: 041
     Dates: start: 20210525, end: 20210525
  5. POLARAMINE [Concomitant]
     Active Substance: DEXCHLORPHENIRAMINE MALEATE
     Indication: Transitional cell carcinoma
     Route: 041
     Dates: start: 20210511, end: 20210511
  6. POLARAMINE [Concomitant]
     Active Substance: DEXCHLORPHENIRAMINE MALEATE
     Route: 041
     Dates: start: 20210525, end: 20210525

REACTIONS (6)
  - Disease progression [Fatal]
  - Interstitial lung disease [Not Recovered/Not Resolved]
  - Hepatic function abnormal [Recovering/Resolving]
  - Platelet count decreased [Unknown]
  - Infusion related reaction [Recovering/Resolving]
  - Anaemia [Unknown]

NARRATIVE: CASE EVENT DATE: 20210511
